FAERS Safety Report 7571845-4 (Version None)
Quarter: 2011Q2

REPORT INFORMATION
  Report Type: 
  Country: None (occurrence: None)
  Receive Date: 20110624
  Receipt Date: 20110616
  Transmission Date: 20111010
  Serious: Yes (Other)
  Sender: FDA-Public Use
  Company Number: US-US-EMD SERONO, INC.-7004799

PATIENT
  Sex: Male
  Weight: 103 kg

DRUGS (8)
  1. REBIF [Suspect]
     Indication: MULTIPLE SCLEROSIS
     Route: 058
     Dates: start: 20091009, end: 20100507
  2. PRAVASTATIN [Concomitant]
     Indication: BLOOD CHOLESTEROL INCREASED
  3. ASPIRIN [Concomitant]
  4. IBUPROFEN [Concomitant]
     Indication: PREMEDICATION
  5. BACLOFEN [Concomitant]
  6. HYDROCODONE [Concomitant]
  7. OXYBUTYNIN [Concomitant]
     Indication: URINARY INCONTINENCE
  8. PAROXETINE HCL [Concomitant]
     Indication: DEPRESSION
     Dates: start: 20000101

REACTIONS (4)
  - WHEEZING [None]
  - URTICARIA [None]
  - INJECTION SITE ERYTHEMA [None]
  - MUSCULAR WEAKNESS [None]
